FAERS Safety Report 18169825 (Version 1)
Quarter: 2020Q3

REPORT INFORMATION
  Report Type: Spontaneous
  Country: GB (occurrence: GB)
  Receive Date: 20200819
  Receipt Date: 20200819
  Transmission Date: 20201103
  Serious: Yes (Hospitalization, Other)
  Sender: FDA-Public Use
  Company Number: GB-TEVA-2020-GB-1815029

PATIENT
  Age: 58 Year
  Sex: Male

DRUGS (6)
  1. ATORVASTATIN [Concomitant]
     Active Substance: ATORVASTATIN
     Indication: PRODUCT USED FOR UNKNOWN INDICATION
     Dosage: 40 MILLIGRAM DAILY;
  2. CLOPIDOGREL [Concomitant]
     Active Substance: CLOPIDOGREL BISULFATE
     Indication: PRODUCT USED FOR UNKNOWN INDICATION
     Dosage: 75 MILLIGRAM DAILY;
  3. MYCOPHENOLATE MOFETIL. [Suspect]
     Active Substance: MYCOPHENOLATE MOFETIL
     Indication: MYASTHENIA GRAVIS
     Dosage: 2 GRAM DAILY; RECEIVING FOR THE PAST 18 MONTHS
     Route: 065
  4. METFORMIN [Concomitant]
     Active Substance: METFORMIN HYDROCHLORIDE
     Indication: TYPE 2 DIABETES MELLITUS
     Dosage: 2 GRAM DAILY;
  5. LANSOPRAZOLE. [Concomitant]
     Active Substance: LANSOPRAZOLE
     Indication: PRODUCT USED FOR UNKNOWN INDICATION
     Dosage: 30 MILLIGRAM DAILY;
  6. ISOPHANE BIPHASIC INSULIN [Concomitant]
     Indication: TYPE 2 DIABETES MELLITUS
     Dosage: 25/75 16 UNITS

REACTIONS (10)
  - Confusional state [Recovered/Resolved]
  - Behaviour disorder [Recovering/Resolving]
  - Brain oedema [Recovering/Resolving]
  - Necrosis [Recovering/Resolving]
  - Vomiting [Recovered/Resolved]
  - Abscess [Recovering/Resolving]
  - Infection reactivation [Recovering/Resolving]
  - Hypogammaglobulinaemia [Recovering/Resolving]
  - Inflammation [Recovering/Resolving]
  - Cerebral toxoplasmosis [Recovering/Resolving]

NARRATIVE: CASE EVENT DATE: 201712
